FAERS Safety Report 9360017 (Version 2)
Quarter: 2013Q3

REPORT INFORMATION
  Report Type: Spontaneous
  Country: JP (occurrence: JP)
  Receive Date: 20130621
  Receipt Date: 20130701
  Transmission Date: 20140515
  Serious: Yes (Death, Hospitalization)
  Sender: FDA-Public Use
  Company Number: PHBS1998JP00983

PATIENT
  Age: 75 Year
  Sex: Male
  Weight: 65 kg

DRUGS (8)
  1. LAMISIL [Suspect]
     Indication: ONYCHOMYCOSIS
     Dosage: 125 MG, QD
     Route: 048
     Dates: start: 19980612, end: 19980818
  2. MARZULENE S [Concomitant]
     Dosage: 1.5 G, UNK
     Route: 048
     Dates: start: 19851129, end: 19980818
  3. LACTOBACILLUS BIFIDUS, LYOPHILIZED [Concomitant]
     Dosage: 2 G, UNK
     Dates: start: 19851129, end: 19980818
  4. MAGNESIUM HYDROXIDE [Concomitant]
     Dosage: 2 G, UNK
     Route: 048
     Dates: start: 19851129, end: 19980818
  5. ALOSENN [Concomitant]
     Dosage: 1 G, UNK
     Route: 048
     Dates: start: 1980, end: 19980818
  6. URSODEOXYCHOLIC ACID [Concomitant]
     Dosage: UNK UKN, UNK
     Route: 048
     Dates: start: 19880422, end: 19980818
  7. DILTIAZEM HYDROCHLORIDE [Concomitant]
     Dosage: 2 OT, UNK
     Route: 048
     Dates: start: 19921012, end: 19980818
  8. FAMOTIDINE [Concomitant]
     Dosage: 1 OT, UNK
     Route: 048
     Dates: start: 19921012, end: 19980818

REACTIONS (7)
  - Hepatic failure [Fatal]
  - Nausea [Fatal]
  - Vomiting [Fatal]
  - Abdominal distension [Fatal]
  - Renal failure [Fatal]
  - Hyperkalaemia [Fatal]
  - Cardio-respiratory arrest [Fatal]
